FAERS Safety Report 8542667-2 (Version None)
Quarter: 2012Q3

REPORT INFORMATION
  Report Type: 
  Country: None (occurrence: None)
  Receive Date: 20120727
  Receipt Date: 20120723
  Transmission Date: 20120928
  Serious: Yes (Hospitalization, Other)
  Sender: FDA-Public Use
  Company Number: US-AMGEN-USASP2012042553

PATIENT
  Age: 9 Year
  Sex: Male

DRUGS (4)
  1. NATURAL OPIUM ALKALOIDS [Concomitant]
     Indication: BONE PAIN
  2. PROLIA [Suspect]
     Dosage: 1.50 MG/KG, UNK
  3. PROLIA [Suspect]
     Dosage: 1 MG/KG, QMO
  4. PROLIA [Suspect]
     Dosage: 1.25 MG/KG, QMO

REACTIONS (6)
  - HYPOPHOSPHATAEMIA [None]
  - HYPERPARATHYROIDISM SECONDARY [None]
  - HYPERCALCAEMIA [None]
  - BONE METABOLISM DISORDER [None]
  - FEMUR FRACTURE [None]
  - FALL [None]
